FAERS Safety Report 6413023-8 (Version None)
Quarter: 2009Q4

REPORT INFORMATION
  Report Type: 
  Country: None (occurrence: None)
  Receive Date: 20091026
  Receipt Date: 20091020
  Transmission Date: 20100525
  Serious: Yes (Other)
  Sender: FDA-Public Use
  Company Number: US-ASTRAZENECA-2007UW23384

PATIENT
  Age: 15970 Day
  Sex: Female
  Weight: 60.4 kg

DRUGS (25)
  1. SEROQUEL [Suspect]
     Indication: BIPOLAR DISORDER
     Route: 048
     Dates: start: 20020101
  2. SEROQUEL [Suspect]
     Indication: DEPRESSION
     Route: 048
     Dates: start: 20020101
  3. SEROQUEL [Suspect]
     Route: 048
     Dates: start: 20031215
  4. SEROQUEL [Suspect]
     Route: 048
     Dates: start: 20031215
  5. SEROQUEL [Suspect]
     Route: 048
     Dates: start: 20040106
  6. SEROQUEL [Suspect]
     Route: 048
     Dates: start: 20040106
  7. LISINOPRIL [Concomitant]
     Dates: start: 20081212
  8. LISINOPRIL [Concomitant]
     Dosage: 5-10 MG
  9. MORPHINE SULFATE [Concomitant]
  10. NORVASC [Concomitant]
  11. LIPITOR [Concomitant]
     Dates: start: 20081212
  12. LIPITOR [Concomitant]
     Dosage: 5-20 MG
  13. LANTUS [Concomitant]
     Dosage: 27-100 UNITS/ML
  14. EFFEXOR XR [Concomitant]
     Dosage: 37.5MG, 75MG, 150MG DAILY
     Dates: start: 20031215
  15. EFFEXOR XR [Concomitant]
     Dosage: 75-150 MG
  16. GABAPENTIN [Concomitant]
  17. HUMALOG [Concomitant]
     Dosage: 100 UNITS/ML
  18. AMBIEN [Concomitant]
     Dates: start: 20020730
  19. AMBIEN [Concomitant]
  20. OXYCODONE HCL [Concomitant]
  21. DEPAKOTE [Concomitant]
     Dates: start: 20020730
  22. LORAZEPAM [Concomitant]
     Dates: start: 20081212
  23. PLAVIX [Concomitant]
     Dates: start: 20081212
  24. INSULIN [Concomitant]
     Dates: start: 20081212
  25. WELLBUTRIN [Concomitant]
     Dates: start: 20020730

REACTIONS (5)
  - DIABETES MELLITUS [None]
  - DIABETES MELLITUS INADEQUATE CONTROL [None]
  - DIABETIC COMA [None]
  - DIABETIC NEUROPATHY [None]
  - KETOACIDOSIS [None]
